FAERS Safety Report 21737129 (Version 1)
Quarter: 2022Q4

REPORT INFORMATION
  Report Type: Spontaneous
  Country: GR (occurrence: GR)
  Receive Date: 20221216
  Receipt Date: 20221216
  Transmission Date: 20230113
  Serious: Yes (Other)
  Sender: FDA-Public Use
  Company Number: GR-AMGEN-GRCSP2022215234

PATIENT
  Age: 80 Year
  Sex: Male

DRUGS (2)
  1. APREMILAST [Suspect]
     Active Substance: APREMILAST
     Indication: Psoriasis
     Dosage: UNK
     Route: 065
  2. APREMILAST [Suspect]
     Active Substance: APREMILAST
     Indication: Subacute cutaneous lupus erythematosus

REACTIONS (3)
  - Subacute cutaneous lupus erythematosus [Unknown]
  - Gastrointestinal disorder [Unknown]
  - Latent tuberculosis [Unknown]
